FAERS Safety Report 9063827 (Version 1)
Quarter: 2013Q1

REPORT INFORMATION
  Report Type: Spontaneous
  Country: US (occurrence: US)
  Receive Date: 20130202
  Receipt Date: 20130202
  Transmission Date: 20140127
  Serious: Yes (Other)
  Sender: FDA-Public Use
  Company Number: US-AMGEN-USASP2013006522

PATIENT
  Age: 49 Year
  Sex: Male

DRUGS (1)
  1. EPOGEN [Suspect]
     Indication: RENAL FAILURE CHRONIC
     Dosage: 2400 UNIT, 3 TIMES/WK
     Dates: start: 2009

REACTIONS (3)
  - Platelet count abnormal [Unknown]
  - Haemoglobin decreased [Unknown]
  - White blood cell count abnormal [Unknown]
